FAERS Safety Report 5568692-1 (Version None)
Quarter: 2007Q4

REPORT INFORMATION
  Report Type: 
  Country: None (occurrence: None)
  Receive Date: 20071220
  Receipt Date: 20070104
  Transmission Date: 20080405
  Serious: No
  Sender: FDA-Public Use
  Company Number: A0621814A

PATIENT
  Age: 75 Year
  Sex: Male

DRUGS (15)
  1. AVODART [Suspect]
     Indication: PROSTATIC DISORDER
     Dosage: .5MG PER DAY
     Route: 048
     Dates: start: 20060601
  2. ASPIRIN [Concomitant]
  3. ADVAIR DISKUS 100/50 [Concomitant]
  4. TENORMIN [Concomitant]
  5. NORVASC [Concomitant]
  6. TRICOR [Concomitant]
  7. NEXIUM [Concomitant]
  8. IMDUR [Concomitant]
  9. LEVOXYL [Concomitant]
  10. COZAAR [Concomitant]
  11. PRAVACHOL [Concomitant]
  12. FLOMAX [Concomitant]
  13. DETROL [Concomitant]
  14. NITROGLYCERIN [Concomitant]
  15. COMBIVENT [Concomitant]

REACTIONS (2)
  - MEDICATION RESIDUE [None]
  - PHARMACEUTICAL PRODUCT COMPLAINT [None]
